FAERS Safety Report 16774161 (Version 3)
Quarter: 2019Q4

REPORT INFORMATION
  Report Type: Spontaneous
  Country: US (occurrence: US)
  Receive Date: 20190905
  Receipt Date: 20191010
  Transmission Date: 20200122
  Serious: No
  Sender: FDA-Public Use
  Company Number: US-JNJFOC-20190903000

PATIENT
  Age: 59 Year
  Sex: Female
  Weight: 56.75 kg

DRUGS (6)
  1. COLAZAL [Concomitant]
     Active Substance: BALSALAZIDE DISODIUM
     Indication: INFLAMMATION
     Route: 065
     Dates: start: 2006
  2. ZYRTEC [Suspect]
     Active Substance: CETIRIZINE HYDROCHLORIDE
     Route: 048
  3. ZYRTEC [Suspect]
     Active Substance: CETIRIZINE HYDROCHLORIDE
     Indication: RHINITIS ALLERGIC
     Dosage: HALF TABLET EVERY COUPLE DAYS, SOMETIMES DAILY
     Route: 048
     Dates: start: 201907, end: 20190902
  4. AMABELZ [Concomitant]
     Active Substance: ESTRADIOL\NORETHINDRONE
     Indication: HORMONE REPLACEMENT THERAPY
     Dosage: ONGOING
     Route: 065
     Dates: start: 2006
  5. CALCIUM W/MAGNESIUM [Concomitant]
     Active Substance: CALCIUM\MAGNESIUM
     Indication: POSTMENOPAUSE
     Dosage: ONGOING
     Route: 065
     Dates: start: 2006
  6. SUDAFED [Concomitant]
     Active Substance: PSEUDOEPHEDRINE HYDROCHLORIDE
     Indication: SINUS CONGESTION
     Dosage: USED OCCASIONAL
     Route: 065

REACTIONS (3)
  - Sinus pain [Not Recovered/Not Resolved]
  - Wrong technique in product usage process [Unknown]
  - Headache [Not Recovered/Not Resolved]

NARRATIVE: CASE EVENT DATE: 201907
